FAERS Safety Report 9143636 (Version 3)
Quarter: 2013Q2

REPORT INFORMATION
  Report Type: Spontaneous
  Country: US (occurrence: US)
  Receive Date: 20130306
  Receipt Date: 20130509
  Transmission Date: 20140414
  Serious: No
  Sender: FDA-Public Use
  Company Number: US-009507513-1303USA001420

PATIENT
  Sex: Female
  Weight: 80.27 kg

DRUGS (23)
  1. DULERA [Suspect]
     Indication: ASTHMA
     Dosage: UNK UNK, QD
     Route: 055
  2. CLARITIN [Concomitant]
     Dosage: 10 MG, PRN
  3. COZAAR [Concomitant]
     Dosage: 100 MG, QD
  4. JANUVIA [Concomitant]
     Dosage: 100 MG, QD
  5. PROVENTIL [Concomitant]
     Dosage: 90 MICROGRAM, 2 PUFFS Q4HOURS PRN
  6. SINGULAIR [Concomitant]
     Dosage: 10 MG, QD
  7. NEXIUM [Concomitant]
     Dosage: 40 MG, QD
  8. PEPCID [Concomitant]
     Dosage: UNK, PRN
  9. POTASSIUM CHLORIDE - USP [Concomitant]
     Dosage: 198 MG, QD
  10. AMARYL [Concomitant]
     Dosage: 4 MG, BID
  11. ASPIRIN [Concomitant]
     Dosage: 81 MG, QD
     Route: 048
  12. ORIGIN CO Q-10 [Concomitant]
     Dosage: 100 MG, QD
  13. FLONASE [Concomitant]
     Dosage: 50 MICROGRAM, 1 TO 2 PUFFS A DAY OR AS NEEDED
  14. GLUMETZA [Concomitant]
     Dosage: 500 MG, BID
  15. HERBS (UNSPECIFIED) [Concomitant]
     Dosage: UNK, QD
     Route: 048
  16. LIBRAX CAPSULES [Concomitant]
     Dosage: 5-2.5 MG, QD
  17. MAGNESIUM (UNSPECIFIED) [Concomitant]
     Dosage: 2 DF, QD
  18. VITAMINS (UNSPECIFIED) [Concomitant]
     Dosage: UNK, QD
  19. PULMICORT [Concomitant]
     Dosage: 180 MICROGRAM, 2 PUFFS BID
  20. SUDAFED [Concomitant]
     Dosage: UNK, PRN
  21. SYNTHROID [Concomitant]
     Dosage: 125 MICROGRAM, ONE DAILY EXCEPT 1 1/2 ON SUNDAY
     Route: 048
  22. WELCHOL [Concomitant]
     Dosage: 625 MG, 6 TABS, QD
  23. ZYRTEC [Concomitant]
     Dosage: UNK UNK, PRN

REACTIONS (7)
  - Sinus congestion [Unknown]
  - Blood glucose increased [Unknown]
  - Headache [Unknown]
  - Product quality issue [Unknown]
  - Incorrect dose administered [Unknown]
  - Central obesity [Unknown]
  - Drug dose omission [Unknown]
